FAERS Safety Report 14068922 (Version 2)
Quarter: 2017Q4

REPORT INFORMATION
  Report Type: Spontaneous
  Country: US (occurrence: US)
  Receive Date: 20171010
  Receipt Date: 20171026
  Transmission Date: 20180321
  Serious: Yes (Other)
  Sender: FDA-Public Use
  Company Number: US-LEXICON PHARMACEUTICALS, INC-17-1606-00968

PATIENT
  Age: 49 Year
  Sex: Male

DRUGS (5)
  1. TELOTRISTAT ETHYL [Suspect]
     Active Substance: TELOTRISTAT ETHYL
     Indication: CARCINOID TUMOUR
     Route: 048
     Dates: start: 20170918, end: 20170921
  2. SANDOSTATIN LAR DEPOT [Concomitant]
     Active Substance: OCTREOTIDE ACETATE
  3. ALLOPURINOL. [Concomitant]
     Active Substance: ALLOPURINOL
  4. FUROSEMIDE. [Concomitant]
     Active Substance: FUROSEMIDE
  5. ASA [Concomitant]
     Active Substance: ASPIRIN

REACTIONS (6)
  - Paranoia [Recovered/Resolved]
  - Abnormal behaviour [Recovering/Resolving]
  - Delusion [Recovered/Resolved]
  - Fatigue [Recovering/Resolving]
  - Suicidal ideation [Recovered/Resolved]
  - Psychotic symptom [Recovering/Resolving]

NARRATIVE: CASE EVENT DATE: 2017
